FAERS Safety Report 7900277-1 (Version None)
Quarter: 2011Q4

REPORT INFORMATION
  Report Type: 
  Country: None (occurrence: None)
  Receive Date: 20111108
  Receipt Date: 20111028
  Transmission Date: 20120403
  Serious: Yes (Hospitalization, Other)
  Sender: FDA-Public Use
  Company Number: BE-JNJFOC-20110106429

PATIENT
  Sex: Male
  Weight: 95 kg

DRUGS (12)
  1. ACETAMINOPHEN AND CODEINE PHOSPHATE [Concomitant]
     Route: 048
     Dates: start: 20060801
  2. GOLIMUMAB [Suspect]
     Route: 058
     Dates: start: 20110104
  3. FOLIC ACID [Concomitant]
     Route: 048
     Dates: start: 20060923
  4. METHOTREXATE [Suspect]
     Indication: RHEUMATOID ARTHRITIS
     Route: 048
     Dates: start: 20060922, end: 20080731
  5. OMEPRAZOLE [Concomitant]
     Route: 048
     Dates: start: 20061101
  6. GOLIMUMAB [Suspect]
     Indication: RHEUMATOID ARTHRITIS
     Route: 058
     Dates: start: 20060922
  7. XENICAL [Concomitant]
     Route: 048
     Dates: start: 20020101
  8. METHOTREXATE [Concomitant]
     Route: 048
     Dates: start: 20100403
  9. GOLIMUMAB [Suspect]
     Route: 058
     Dates: start: 20100721
  10. LIPITOR [Concomitant]
     Route: 048
     Dates: start: 20010101
  11. TRAMADOL HCL [Concomitant]
     Route: 048
     Dates: start: 20060701
  12. DICLOFENAC SODIUM [Concomitant]
     Route: 048
     Dates: start: 20060701

REACTIONS (2)
  - LUMBAR SPINAL STENOSIS [None]
  - HAEMATOMA [None]
